FAERS Safety Report 9281062 (Version 2)
Quarter: 2013Q3

REPORT INFORMATION
  Report Type: Spontaneous
  Country: US (occurrence: US)
  Receive Date: 20130509
  Receipt Date: 20130730
  Transmission Date: 20140515
  Serious: Yes (Hospitalization, Other)
  Sender: FDA-Public Use
  Company Number: US-BAYER-2013-054858

PATIENT
  Age: 16 Year
  Sex: Female
  Weight: 89.8 kg

DRUGS (1)
  1. YAZ [Suspect]
     Indication: CONTRACEPTION
     Dosage: UNK
     Dates: start: 2001, end: 2004

REACTIONS (3)
  - Thrombosis [None]
  - Complication of pregnancy [None]
  - Drug ineffective [None]
